FAERS Safety Report 4963665-1 (Version None)
Quarter: 2006Q1

REPORT INFORMATION
  Report Type: 
  Country: None (occurrence: None)
  Receive Date: 20060330
  Receipt Date: 20060323
  Transmission Date: 20060701
  Serious: Yes (Other)
  Sender: FDA-Public Use
  Company Number: 200610270BNE

PATIENT
  Age: 56 Year
  Sex: Female

DRUGS (7)
  1. CANESTEN PESSARY (CLOTRIMAZOLE) [Suspect]
     Indication: CANDIDIASIS
     Dosage: ONCE
     Dates: start: 20060309
  2. KLIOFEM [Concomitant]
  3. GARLIC [Concomitant]
  4. GLUCOSAMINE SULPHATE KCL [Concomitant]
  5. OMEGA 3 [Concomitant]
  6. COENZYME Q10 [Concomitant]
  7. MULTI-VITAMIN [Concomitant]

REACTIONS (6)
  - DRUG HYPERSENSITIVITY [None]
  - DYSSTASIA [None]
  - EAR INFECTION [None]
  - FALL [None]
  - SOMNOLENCE [None]
  - VERTIGO [None]
